FAERS Safety Report 8983834 (Version 1)
Quarter: 2012Q4

REPORT INFORMATION
  Report Type: 
  Country: FR (occurrence: FR)
  Receive Date: 20121224
  Receipt Date: 20121224
  Transmission Date: 20130627
  Serious: Yes (Hospitalization)
  Sender: FDA-Public Use
  Company Number: FR-ROCHE-1170993

PATIENT
  Age: 77 Year
  Sex: Male

DRUGS (14)
  1. VALIUM [Suspect]
     Indication: PROPHYLAXIS AGAINST ALCOHOLIC WITHDRAWAL SYNDROME
     Route: 048
     Dates: start: 20121030, end: 20121112
  2. VALIUM [Suspect]
     Dosage: dosage reduced, 1 tablet in the morning and 1 in the evening
     Route: 048
     Dates: start: 20121102
  3. NICOBION [Concomitant]
     Route: 065
  4. FLAGYL [Concomitant]
     Route: 065
  5. DOLIPRANE [Concomitant]
     Route: 065
  6. VALDOXAN [Concomitant]
     Route: 065
  7. LYRICA [Concomitant]
     Route: 065
  8. LYRICA [Concomitant]
     Route: 065
  9. ZYLORIC [Concomitant]
     Route: 065
  10. DIFFU K [Concomitant]
     Route: 065
  11. NUTRITIONAL SUPPLEMENT [Concomitant]
     Route: 048
  12. SPECIAFOLDINE [Concomitant]
     Dosage: 2 units of 5 DF 1 per 1 day
     Route: 065
  13. VITAMIN B1 [Concomitant]
  14. VITAMIN B6 [Concomitant]

REACTIONS (2)
  - Somnolence [Recovered/Resolved]
  - Dysphagia [Recovered/Resolved]
